FAERS Safety Report 6571140-6 (Version None)
Quarter: 2010Q1

REPORT INFORMATION
  Report Type: 
  Country: None (occurrence: None)
  Receive Date: 20100204
  Receipt Date: 20100127
  Transmission Date: 20100710
  Serious: Yes (Hospitalization)
  Sender: FDA-Public Use
  Company Number: US-ELI_LILLY_AND_COMPANY-US201001005949

PATIENT
  Sex: Female

DRUGS (2)
  1. HUMALOG MIX 75/25 [Suspect]
     Indication: DIABETES MELLITUS
     Dosage: 40 U, EACH MORNING
     Dates: start: 20091201
  2. HUMALOG MIX 75/25 [Suspect]
     Dosage: 60 U, EACH EVENING
     Dates: start: 20091201

REACTIONS (2)
  - SKIN INFECTION [None]
  - WRONG TECHNIQUE IN DRUG USAGE PROCESS [None]
